FAERS Safety Report 13145735 (Version 1)
Quarter: 2017Q1

REPORT INFORMATION
  Report Type: Report from Study
  Country: CA (occurrence: CA)
  Receive Date: 20170124
  Receipt Date: 20170124
  Transmission Date: 20170428
  Serious: Yes (Hospitalization)
  Sender: FDA-Public Use
  Company Number: CA-GILEAD-2017-0251778

PATIENT
  Age: 21 Year
  Sex: Male

DRUGS (1)
  1. CAYSTON [Suspect]
     Active Substance: AZTREONAM
     Indication: CYSTIC FIBROSIS
     Dosage: UNK
     Route: 055

REACTIONS (4)
  - Drug dose omission [Unknown]
  - Road traffic accident [Unknown]
  - Device malfunction [Unknown]
  - Injury [Unknown]

NARRATIVE: CASE EVENT DATE: 20170113
